FAERS Safety Report 8318738-2 (Version None)
Quarter: 2012Q2

REPORT INFORMATION
  Report Type: 
  Country: None (occurrence: None)
  Receive Date: 20120427
  Receipt Date: 20120420
  Transmission Date: 20120825
  Serious: Yes (Death)
  Sender: FDA-Public Use
  Company Number: CN-PFIZER INC-2012102701

PATIENT

DRUGS (1)
  1. PANTOPRAZOLE [Suspect]
     Dosage: 40 MG DISSOLVED IN 100 ML OF NORMAL SALINE QD OR BID
     Route: 042

REACTIONS (1)
  - DEATH [None]
